FAERS Safety Report 24250759 (Version 1)
Quarter: 2024Q3

REPORT INFORMATION
  Report Type: Spontaneous
  Country: US (occurrence: US)
  Receive Date: 20240826
  Receipt Date: 20240826
  Transmission Date: 20241017
  Serious: No
  Sender: MEDEXUS PHARMA
  Company Number: US-MEDEXUS PHARMA, INC.-2023MED00405

PATIENT
  Age: 30 Year
  Sex: Female

DRUGS (8)
  1. RASUVO [Suspect]
     Active Substance: METHOTREXATE SODIUM
     Dosage: 20 MG
  2. HUMIRA [Concomitant]
     Active Substance: ADALIMUMAB
  3. METHYLPHENIDATE HYDROCHLORIDE [Concomitant]
     Active Substance: METHYLPHENIDATE HYDROCHLORIDE
  4. FLUOXETINE [Concomitant]
     Active Substance: FLUOXETINE HYDROCHLORIDE
  5. FEXOFENADINE [Concomitant]
     Active Substance: FEXOFENADINE HYDROCHLORIDE
  6. ATOMOXETINE [Concomitant]
     Active Substance: ATOMOXETINE HYDROCHLORIDE
  7. DEPLIN [CALCIUM LEVOMEFOLATE] [Concomitant]
  8. MONTELUKAST [Concomitant]
     Active Substance: MONTELUKAST SODIUM

REACTIONS (1)
  - COVID-19 [Recovered/Resolved]

NARRATIVE: CASE EVENT DATE: 20230901
